FAERS Safety Report 11260912 (Version 2)
Quarter: 2015Q3

REPORT INFORMATION
  Report Type: Spontaneous
  Country: US (occurrence: US)
  Receive Date: 20150710
  Receipt Date: 20150910
  Transmission Date: 20151125
  Serious: No
  Sender: FDA-Public Use
  Company Number: US-009507513-1506USA011210

PATIENT
  Sex: Female

DRUGS (1)
  1. NEXPLANON [Suspect]
     Active Substance: ETONOGESTREL
     Dosage: 1 ROD INSERTED IN THE ARM
     Route: 059
     Dates: start: 20150619

REACTIONS (2)
  - Product quality issue [Unknown]
  - Accidental exposure to product [Unknown]
